FAERS Safety Report 4597333-5 (Version None)
Quarter: 2005Q1

REPORT INFORMATION
  Report Type: 
  Country: None (occurrence: None)
  Receive Date: 20050225
  Receipt Date: 20050225
  Transmission Date: 20050727
  Serious: Yes (Hospitalization)
  Sender: FDA-Public Use
  Company Number: None

PATIENT
  Sex: Male
  Weight: 80.4 kg

DRUGS (2)
  1. IRESSA [Suspect]
     Indication: OESOPHAGEAL CARCINOMA
     Dosage: 250 MG DAILY PO
     Route: 048
     Dates: start: 20041011, end: 20041107
  2. COLACE [Suspect]
     Indication: CONSTIPATION
     Dosage: 100 MG BID PO
     Route: 048

REACTIONS (3)
  - LUNG CONSOLIDATION [None]
  - PLEURAL EFFUSION [None]
  - PULMONARY FUNCTION TEST DECREASED [None]
